FAERS Safety Report 18206456 (Version 1)
Quarter: 2020Q3

REPORT INFORMATION
  Report Type: Report from Study
  Country: FR (occurrence: FR)
  Receive Date: 20200828
  Receipt Date: 20200828
  Transmission Date: 20201103
  Serious: Yes (Other)
  Sender: FDA-Public Use
  Company Number: NVSC2020FR235308

PATIENT
  Sex: Female

DRUGS (1)
  1. BYL719 [Suspect]
     Active Substance: ALPELISIB
     Indication: BREAST CANCER METASTATIC
     Dosage: QD
     Route: 065
     Dates: start: 20200416, end: 20200519

REACTIONS (4)
  - Rash [Unknown]
  - Hepatocellular injury [Unknown]
  - Mucosal inflammation [Unknown]
  - Asthenia [Unknown]
